FAERS Safety Report 9178542 (Version 1)
Quarter: 2013Q1

REPORT INFORMATION
  Report Type: Spontaneous
  Country: US (occurrence: US)
  Receive Date: 20130321
  Receipt Date: 20130321
  Transmission Date: 20140127
  Serious: Yes (Other)
  Sender: FDA-Public Use
  Company Number: US-009507513-1303USA009558

PATIENT
  Sex: Female

DRUGS (4)
  1. FOSAMAX [Suspect]
     Dosage: UNK
     Route: 048
     Dates: start: 200009, end: 201106
  2. ALENDRONATE SODIUM [Suspect]
     Dosage: UNK
     Dates: start: 200009, end: 201106
  3. BONIVA [Suspect]
     Dosage: UNK
     Dates: start: 200009, end: 201106
  4. IBANDRONATE SODIUM [Suspect]
     Dosage: UNK
     Dates: start: 200009, end: 201106

REACTIONS (1)
  - Femur fracture [Unknown]
